FAERS Safety Report 6964559-2 (Version None)
Quarter: 2010Q3

REPORT INFORMATION
  Report Type: 
  Country: None (occurrence: None)
  Receive Date: 20100903
  Receipt Date: 20100902
  Transmission Date: 20110219
  Serious: Yes (Other)
  Sender: FDA-Public Use
  Company Number: US-ASTRAZENECA-2007UW09222

PATIENT
  Age: 28 Year
  Sex: Male
  Weight: 149.7 kg

DRUGS (10)
  1. SEROQUEL [Suspect]
     Indication: POST-TRAUMATIC STRESS DISORDER
     Route: 048
     Dates: start: 19990901, end: 20000401
  2. SEROQUEL [Suspect]
     Dosage: 1 HS AT FIRST NIGHT, 2 HS AT SECOND NIGHT, 3 HS AT THIRD NIGHT
     Route: 048
     Dates: start: 20000302
  3. SEROQUEL [Suspect]
     Dosage: 25 MG- 100 MG
     Route: 048
     Dates: start: 20000501, end: 20020501
  4. EFFEXOR [Concomitant]
     Dosage: 2.5-10 MG
     Dates: start: 20000615, end: 20010601
  5. DEPAKOTE [Concomitant]
     Dosage: 500 MG IN THE A.M. AND 1000 MG HS.
     Route: 048
     Dates: start: 20060606
  6. GEMFIBROZIL [Concomitant]
     Route: 048
     Dates: start: 20030319
  7. LIPITOR [Concomitant]
     Route: 048
     Dates: start: 20030313
  8. PAXIL [Concomitant]
     Indication: DEPRESSION
     Dosage: 10 TO 40 MG
     Dates: start: 20000121
  9. RISPERDAL [Concomitant]
     Indication: BIPOLAR DISORDER
     Dosage: 3 MG-5MG
     Dates: start: 20000601, end: 20070101
  10. RISPERDAL [Concomitant]
     Indication: POST-TRAUMATIC STRESS DISORDER
     Dosage: 3 MG-5MG
     Dates: start: 20000601, end: 20070101

REACTIONS (2)
  - NEUROPATHY PERIPHERAL [None]
  - TYPE 2 DIABETES MELLITUS [None]
